FAERS Safety Report 7692203 (Version 3)
Quarter: 2013Q4

REPORT INFORMATION
  Report Type: Spontaneous
  Country: US (occurrence: US)
  Receive Date: 20101205
  Receipt Date: 20131118
  Transmission Date: 20140711
  Serious: Yes (Hospitalization, Other)
  Sender: FDA-Public Use
  Company Number: US-BAYER-201041566NA

PATIENT
  Age: 18 Year
  Sex: Female
  Weight: 45.35 kg

DRUGS (6)
  1. YAZ [Suspect]
     Indication: ACNE
     Dosage: UNK
     Route: 048
     Dates: start: 200312, end: 200603
  2. YASMIN [Suspect]
     Indication: ACNE
     Dosage: UNK
     Route: 048
     Dates: start: 200312, end: 200603
  3. OCELLA [Suspect]
     Indication: ACNE
     Dosage: UNK
     Route: 048
     Dates: start: 200312, end: 200603
  4. RANITIDINE [Concomitant]
     Dosage: UNK
     Dates: start: 20050812
  5. SUCRALFATE [Concomitant]
     Dosage: UNK
     Dates: start: 20050909
  6. METOCLOPRAMIDE [Concomitant]
     Dosage: UNK
     Dates: start: 20050909

REACTIONS (4)
  - Cholecystitis chronic [None]
  - Gallbladder disorder [None]
  - Pain [None]
  - Biliary dyskinesia [None]
